FAERS Safety Report 6569179-X (Version None)
Quarter: 2010Q1

REPORT INFORMATION
  Report Type: 
  Country: None (occurrence: None)
  Receive Date: 20100201
  Receipt Date: 20100201
  Transmission Date: 20100710
  Serious: Yes (Hospitalization)
  Sender: FDA-Public Use
  Company Number: None

PATIENT
  Age: 65 Year
  Sex: Male
  Weight: 58 kg

DRUGS (1)
  1. LEVOFLOXACIN [Suspect]
     Indication: PNEUMONIA
     Dosage: 750 MG EVERY DAY PO
     Route: 048
     Dates: start: 20091128, end: 20091207

REACTIONS (3)
  - CLOSTRIDIUM DIFFICILE COLITIS [None]
  - LEUKOCYTOSIS [None]
  - RENAL FAILURE ACUTE [None]
